FAERS Safety Report 4363121-8 (Version None)
Quarter: 2004Q2

REPORT INFORMATION
  Report Type: 
  Country: None (occurrence: None)
  Receive Date: 20040520
  Receipt Date: 20040520
  Transmission Date: 20050107
  Serious: Yes (Other)
  Sender: FDA-Public Use
  Company Number: None

PATIENT
  Sex: Male
  Weight: 41.7309 kg

DRUGS (6)
  1. CEPHALEXIN [Suspect]
     Indication: COUGH
     Dosage: ORAL
     Route: 048
  2. CEPHALEXIN [Suspect]
     Indication: INFECTION
     Dosage: ORAL
     Route: 048
  3. CEPHALEXIN [Suspect]
     Indication: NASOPHARYNGITIS
     Dosage: ORAL
     Route: 048
  4. AMOXICILLIN [Suspect]
     Indication: COUGH
     Dosage: ORAL
     Route: 048
  5. AMOXICILLIN [Suspect]
     Indication: INFECTION
     Dosage: ORAL
     Route: 048
  6. AMOXICILLIN [Suspect]
     Indication: NASOPHARYNGITIS
     Dosage: ORAL
     Route: 048

REACTIONS (1)
  - MEDICATION ERROR [None]
